FAERS Safety Report 15804368 (Version 1)
Quarter: 2019Q1

REPORT INFORMATION
  Report Type: Spontaneous
  Country: US (occurrence: US)
  Receive Date: 20190109
  Receipt Date: 20190109
  Transmission Date: 20190417
  Serious: Yes (Hospitalization, Other)
  Sender: FDA-Public Use
  Company Number: US-IMPAX LABORATORIES, LLC-2018-IPXL-04431

PATIENT
  Age: 33 Year
  Sex: Male

DRUGS (1)
  1. SEVELAMER CARBONATE. [Suspect]
     Active Substance: SEVELAMER CARBONATE
     Indication: CHRONIC KIDNEY DISEASE
     Dosage: 2400 MILLIGRAM, 3 /DAY
     Route: 048

REACTIONS (3)
  - Rectal ulcer [Unknown]
  - Haematochezia [Recovered/Resolved]
  - Anaemia [Unknown]
